FAERS Safety Report 23493534 (Version 1)
Quarter: 2024Q1

REPORT INFORMATION
  Report Type: Spontaneous
  Country: JP (occurrence: JP)
  Receive Date: 20240207
  Receipt Date: 20240207
  Transmission Date: 20240410
  Serious: Yes (Other)
  Sender: FDA-Public Use
  Company Number: JP-SUN PHARMACEUTICAL INDUSTRIES LTD-2023RR-430358

PATIENT
  Age: 60 Year
  Sex: Male

DRUGS (2)
  1. CAPECITABINE [Suspect]
     Active Substance: CAPECITABINE
     Indication: Gastric cancer
     Dosage: 1000 MILLIGRAM PER CUBIC METRE, BID
     Route: 048
  2. OXALIPLATIN [Suspect]
     Active Substance: OXALIPLATIN
     Indication: Gastric cancer
     Dosage: 130 MILLIGRAM PER CUBIC METRE
     Route: 040

REACTIONS (1)
  - Disease progression [Unknown]
